FAERS Safety Report 8941476 (Version 1)
Quarter: 2012Q4

REPORT INFORMATION
  Report Type: Report from Study
  Country: CA (occurrence: CA)
  Receive Date: 20121203
  Receipt Date: 20121203
  Transmission Date: 20130627
  Serious: Yes (Other)
  Sender: FDA-Public Use
  Company Number: CA-JNJFOC-20121111791

PATIENT
  Age: 46 Year
  Sex: Male
  Weight: 72.5 kg

DRUGS (3)
  1. REMICADE [Suspect]
     Indication: CROHN^S DISEASE
     Route: 042
     Dates: start: 20100728
  2. REMICADE [Suspect]
     Indication: CROHN^S DISEASE
     Dosage: 16th infusion
     Route: 042
     Dates: start: 20120927
  3. ACLASTA [Concomitant]
     Route: 065

REACTIONS (4)
  - Rib fracture [Recovering/Resolving]
  - Fall [Recovering/Resolving]
  - Hypokinesia [Recovering/Resolving]
  - Traumatic lung injury [Recovering/Resolving]
